FAERS Safety Report 8883096 (Version 2)
Quarter: 2012Q4

REPORT INFORMATION
  Report Type: 
  Country: US (occurrence: US)
  Receive Date: 20121102
  Receipt Date: 20121108
  Transmission Date: 20130627
  Serious: No
  Sender: FDA-Public Use
  Company Number: US-TEVA-367048USA

PATIENT
  Sex: Female

DRUGS (3)
  1. ACTIQ [Suspect]
     Indication: MIGRAINE
     Dosage: Q 4 hrs PRN
     Route: 002
  2. ACTIQ [Suspect]
     Dosage: Q4hrs PRN
     Route: 002
  3. ACTIQ [Suspect]

REACTIONS (5)
  - Drug prescribing error [Unknown]
  - Off label use [Unknown]
  - Malaise [Unknown]
  - Drug ineffective for unapproved indication [Unknown]
  - Dental caries [Unknown]
